FAERS Safety Report 5504524-5 (Version None)
Quarter: 2007Q4

REPORT INFORMATION
  Report Type: 
  Country: None (occurrence: None)
  Receive Date: 20071030
  Receipt Date: 20071016
  Transmission Date: 20080405
  Serious: Yes (Other)
  Sender: FDA-Public Use
  Company Number: 2007JP004826

PATIENT
  Age: 41 Year
  Sex: Male

DRUGS (3)
  1. PROGRAF [Suspect]
     Indication: BONE MARROW TRANSPLANT
  2. METHOTREXATE [Concomitant]
  3. IMATINIB (IMATINIB) PER ORAL NOS [Concomitant]

REACTIONS (7)
  - CONVULSION [None]
  - ENCEPHALITIS HERPES [None]
  - HUMAN HERPESVIRUS 6 INFECTION [None]
  - PRURITUS GENERALISED [None]
  - PYREXIA [None]
  - RASH [None]
  - STATUS EPILEPTICUS [None]
